FAERS Safety Report 24292810 (Version 1)
Quarter: 2024Q3

REPORT INFORMATION
  Report Type: Spontaneous
  Country: US (occurrence: None)
  Receive Date: 20240906
  Receipt Date: 20240906
  Transmission Date: 20241016
  Serious: No
  Sender: DOMPE FARMACEUTICI
  Company Number: US-FARMAPROD-202308-202310-3112

PATIENT
  Age: 72 Year
  Sex: Female

DRUGS (15)
  1. OXERVATE [Suspect]
     Active Substance: CENEGERMIN-BKBJ
     Indication: Corneal oedema
     Route: 047
     Dates: start: 20231013
  2. RESTASIS [Concomitant]
     Active Substance: CYCLOSPORINE
  3. TOVIAZ [Concomitant]
     Active Substance: FESOTERODINE FUMARATE
     Dosage: 24 HOURS.
  4. PRIMIDONE [Concomitant]
     Active Substance: PRIMIDONE
  5. PRAVASTATIN SODIUM [Concomitant]
     Active Substance: PRAVASTATIN SODIUM
  6. CHONDROITIN SULFATE A\GLUCOSAMINE [Concomitant]
     Active Substance: CHONDROITIN SULFATE A\GLUCOSAMINE
     Dosage: 1500MG-400
  7. MYRBETRIQ [Concomitant]
     Active Substance: MIRABEGRON
     Dosage: 24 HOURS.
  8. MODAFINIL [Concomitant]
     Active Substance: MODAFINIL
  9. ESCITALOPRAM OXALATE [Concomitant]
     Active Substance: ESCITALOPRAM OXALATE
  10. CLONAZEPAM [Concomitant]
     Active Substance: CLONAZEPAM
  11. VITAMINS [Concomitant]
     Active Substance: VITAMINS
  12. BACLOFEN [Concomitant]
     Active Substance: BACLOFEN
  13. ACYCLOVIR [Concomitant]
     Active Substance: ACYCLOVIR
  14. REFRESH CLASSIC [Concomitant]
     Active Substance: POLYVINYL ALCOHOL\POVIDONE
  15. PREDNISOLONE ACETATE [Concomitant]
     Active Substance: PREDNISOLONE ACETATE

REACTIONS (2)
  - Eye pain [Unknown]
  - Periorbital pain [Unknown]

NARRATIVE: CASE EVENT DATE: 20231001
